FAERS Safety Report 8976018 (Version 1)
Quarter: 2012Q4

REPORT INFORMATION
  Report Type: Report from Study
  Country: DE (occurrence: DE)
  Receive Date: 20121219
  Receipt Date: 20121219
  Transmission Date: 20130627
  Serious: Yes (Hospitalization)
  Sender: FDA-Public Use
  Company Number: DE-ROCHE-1080939

PATIENT
  Age: 60 Year
  Sex: Female
  Weight: 60 kg

DRUGS (5)
  1. CARBOPLATIN [Suspect]
     Indication: BREAST CANCER
     Dosage: AUC 2, Last dose prior to sae: 01/Jun/2012
     Route: 042
     Dates: start: 20120322, end: 20120615
  2. DOXORUBICIN [Suspect]
     Indication: BREAST CANCER
     Dosage: Last dose prior to sae: 01/Jun/2012
     Route: 042
     Dates: start: 20120322, end: 20120615
  3. PACLITAXEL [Suspect]
     Indication: BREAST CANCER
     Dosage: Last dose prior to sae: 01/Jun/2012
     Route: 042
     Dates: start: 20120322, end: 20120615
  4. LAPATINIB [Suspect]
     Indication: BREAST CANCER
     Route: 048
     Dates: start: 20120322, end: 20120615
  5. TRASTUZUMAB [Suspect]
     Indication: BREAST CANCER
     Dosage: Last dose prior to sae: 01/Jun/2012
     Route: 042
     Dates: start: 20120322, end: 20120615

REACTIONS (2)
  - Colitis [Recovered/Resolved]
  - Colitis [Recovered/Resolved]
